FAERS Safety Report 15493007 (Version 2)
Quarter: 2019Q1

REPORT INFORMATION
  Report Type: Spontaneous
  Country: JP (occurrence: JP)
  Receive Date: 20181012
  Receipt Date: 20190111
  Transmission Date: 20190417
  Serious: Yes (Hospitalization, Other)
  Sender: FDA-Public Use
  Company Number: JP-SA-2018SA272625

PATIENT
  Age: 68 Year
  Sex: Female

DRUGS (6)
  1. KEVZARA [Suspect]
     Active Substance: SARILUMAB
     Indication: RHEUMATOID ARTHRITIS
     Dosage: 200 MG, QOW
     Route: 058
  2. BUCILLAMINE [Concomitant]
     Active Substance: BUCILLAMINE
     Indication: RHEUMATOID ARTHRITIS
     Route: 065
  3. SALAZOSULFAPYRIDINE [Concomitant]
     Active Substance: SULFASALAZINE
     Indication: RHEUMATOID ARTHRITIS
     Route: 065
  4. PREDNISOLONE. [Suspect]
     Active Substance: PREDNISOLONE
     Indication: RHEUMATOID ARTHRITIS
     Dosage: UNK
     Route: 048
  5. TACROLIMUS. [Concomitant]
     Active Substance: TACROLIMUS
     Indication: RHEUMATOID ARTHRITIS
     Route: 065
  6. METHOTREXATE. [Suspect]
     Active Substance: METHOTREXATE
     Indication: RHEUMATOID ARTHRITIS
     Dosage: 8 MG
     Route: 048

REACTIONS (1)
  - Interstitial lung disease [Unknown]
